FAERS Safety Report 8797234 (Version 1)
Quarter: 2012Q4

REPORT INFORMATION
  Report Type: 
  Country: JP (occurrence: US)
  Receive Date: 20120920
  Receipt Date: 20120920
  Transmission Date: 20130627
  Serious: Yes (Hospitalization, Other)
  Sender: FDA-Public Use
  Company Number: US-JNJFOC-20100707436

PATIENT
  Sex: Female

DRUGS (17)
  1. LEVAQUIN [Suspect]
     Indication: CHRONIC OBSTRUCTIVE PULMONARY DISEASE
     Route: 048
     Dates: start: 200604, end: 200702
  2. LEVAQUIN [Suspect]
     Indication: BRONCHITIS
     Route: 048
     Dates: start: 200604, end: 200702
  3. LEVAQUIN [Suspect]
     Indication: PNEUMONIA
     Route: 042
     Dates: start: 20020819
  4. PREDNISOLONE [Suspect]
     Indication: INFECTION
     Route: 048
  5. SOLU MEDROL [Suspect]
     Indication: EMPHYSEMA
     Route: 042
  6. SOLU MEDROL [Suspect]
     Indication: RESPIRATORY FAILURE
     Route: 042
  7. SOLU MEDROL [Suspect]
     Indication: PNEUMONIA
     Route: 042
  8. AVELOX [Suspect]
     Indication: EMPHYSEMA
     Route: 048
  9. AVELOX [Suspect]
     Indication: RESPIRATORY FAILURE
     Route: 048
  10. AVELOX [Suspect]
     Indication: PNEUMONIA
     Route: 048
  11. ADVAIR DISKUS [Suspect]
     Indication: EMPHYSEMA
     Route: 065
  12. ADVAIR DISKUS [Suspect]
     Indication: RESPIRATORY FAILURE
     Route: 065
  13. ADVAIR DISKUS [Suspect]
     Indication: PNEUMONIA
     Route: 065
  14. MEDROL [Suspect]
     Indication: EMPHYSEMA
     Route: 048
  15. MEDROL [Suspect]
     Indication: RESPIRATORY FAILURE
     Route: 048
  16. MEDROL [Suspect]
     Indication: PNEUMONIA
     Route: 048
  17. CIPRO [Suspect]
     Indication: DIVERTICULITIS
     Route: 065

REACTIONS (4)
  - Tendon disorder [Unknown]
  - Rotator cuff syndrome [Unknown]
  - Tendon rupture [Recovering/Resolving]
  - Tenosynovitis [Recovering/Resolving]
